FAERS Safety Report 5830362-X (Version None)
Quarter: 2008Q3

REPORT INFORMATION
  Report Type: 
  Country: None (occurrence: None)
  Receive Date: 20080801
  Receipt Date: 20080721
  Transmission Date: 20090109
  Serious: Yes (Hospitalization, Other)
  Sender: FDA-Public Use
  Company Number: GB-ROCHE-531258

PATIENT
  Sex: Female
  Weight: 103 kg

DRUGS (6)
  1. ORLISTAT [Suspect]
     Indication: OBESITY
     Route: 048
     Dates: start: 20070501, end: 20071027
  2. LANSOPRAZOLE [Concomitant]
     Dates: start: 20070913, end: 20071027
  3. RANITIDINE HCL [Concomitant]
     Dates: start: 20040511, end: 20071027
  4. DIANETTE [Concomitant]
     Dosage: LAST TREATMENT 06 JULY 2007.
  5. OMEPRAZOLE [Concomitant]
     Route: 048
     Dates: start: 20071213
  6. PROCHLORPERAZINE [Concomitant]
     Dosage: ONLY TOOK FOR A FEW DAYS
     Route: 048
     Dates: start: 20080108

REACTIONS (2)
  - ABORTION SPONTANEOUS [None]
  - SEPTIC SHOCK [None]
